FAERS Safety Report 6836929-4 (Version None)
Quarter: 2010Q3

REPORT INFORMATION
  Report Type: 
  Country: None (occurrence: None)
  Receive Date: 20100713
  Receipt Date: 20100616
  Transmission Date: 20110219
  Serious: Yes (Other)
  Sender: FDA-Public Use
  Company Number: PHHY2010PH39865

PATIENT
  Age: 16 Year
  Sex: Female

DRUGS (2)
  1. SANDOSTATIN [Suspect]
     Dosage: 100 UG, UNK
     Route: 058
  2. SANDOSTATIN LAR [Suspect]
     Route: 030

REACTIONS (2)
  - DYSPNOEA [None]
  - NAUSEA [None]
